FAERS Safety Report 17431355 (Version 1)
Quarter: 2020Q1

REPORT INFORMATION
  Report Type: Spontaneous
  Country: CA (occurrence: CA)
  Receive Date: 20200218
  Receipt Date: 20200218
  Transmission Date: 20200409
  Serious: Yes (Hospitalization)
  Sender: FDA-Public Use
  Company Number: CA-TEVA-2020-CA-1186989

PATIENT
  Age: 46 Year
  Sex: Female

DRUGS (7)
  1. PREDNISONE. [Suspect]
     Active Substance: PREDNISONE
     Indication: PRODUCT USED FOR UNKNOWN INDICATION
     Route: 065
  2. SALBUTAMOL [Suspect]
     Active Substance: ALBUTEROL
     Indication: ASTHMA
     Route: 065
  3. TIOTROPIUM [Concomitant]
     Active Substance: TIOTROPIUM
     Indication: ASTHMA
     Dosage: 1 DOSAGE FORMS DAILY;
     Route: 065
  4. OLOPATADINE HYDROCHLORIDE. [Concomitant]
     Active Substance: OLOPATADINE HYDROCHLORIDE
     Indication: MULTIPLE ALLERGIES
     Dosage: 1 DOSAGE FORMS DAILY;
     Route: 047
  5. OMNARIS [Concomitant]
     Active Substance: CICLESONIDE
     Indication: MULTIPLE ALLERGIES
     Route: 065
  6. BUDESONIDE. [Concomitant]
     Active Substance: BUDESONIDE
     Indication: ASTHMA
     Dosage: 2 DOSAGE FORMS DAILY;
     Route: 065
  7. FORMOTEROL [Concomitant]
     Active Substance: FORMOTEROL
     Indication: ASTHMA
     Dosage: 4 DOSAGE FORMS DAILY;
     Route: 065

REACTIONS (6)
  - Asthma [Unknown]
  - Blood count abnormal [Unknown]
  - Ill-defined disorder [Unknown]
  - Therapeutic product effect decreased [Unknown]
  - Dyspnoea [Unknown]
  - Respiratory symptom [Unknown]
